FAERS Safety Report 15897224 (Version 2)
Quarter: 2019Q1

REPORT INFORMATION
  Report Type: Spontaneous
  Country: ES (occurrence: ES)
  Receive Date: 20190131
  Receipt Date: 20190205
  Transmission Date: 20190417
  Serious: Yes (Hospitalization)
  Sender: FDA-Public Use
  Company Number: ES-B.I. PHARMACEUTICALS,INC./RIDGEFIELD-2019-BI-003771

PATIENT
  Age: 78 Year
  Sex: Female
  Weight: 56 kg

DRUGS (1)
  1. PRADAXA [Suspect]
     Active Substance: DABIGATRAN ETEXILATE MESYLATE
     Indication: ATRIAL FIBRILLATION
     Dosage: DOSE AND DAILY DOSE: 150
     Route: 065
     Dates: end: 20190121

REACTIONS (5)
  - Post procedural haemorrhage [Not Recovered/Not Resolved]
  - Anticoagulation drug level above therapeutic [Not Recovered/Not Resolved]
  - Septic shock [Not Recovered/Not Resolved]
  - Gastroenteritis [Not Recovered/Not Resolved]
  - Metabolic acidosis [Not Recovered/Not Resolved]

NARRATIVE: CASE EVENT DATE: 20190121
